FAERS Safety Report 5241779-9 (Version None)
Quarter: 2007Q1

REPORT INFORMATION
  Report Type: 
  Country: None (occurrence: None)
  Receive Date: 20070220
  Receipt Date: 20070207
  Transmission Date: 20070707
  Serious: Yes (Death, Life-Threatening, Hospitalization)
  Sender: FDA-Public Use
  Company Number: JP-SANOFI-SYNTHELABO-A01200700115

PATIENT
  Sex: Female

DRUGS (9)
  1. XYLOCAINE [Suspect]
     Indication: BRONCHOSCOPY
     Route: 055
     Dates: start: 20010712, end: 20010712
  2. ATROPINE SULFATE [Suspect]
     Indication: BRONCHOSCOPY
     Route: 030
     Dates: start: 20010712, end: 20010712
  3. HORIZON [Suspect]
     Indication: EPILEPSY
     Route: 042
     Dates: start: 20010712, end: 20010712
  4. LANIRAPID [Concomitant]
     Indication: PROPHYLAXIS
     Route: 048
     Dates: end: 20010712
  5. BISOPROLOL FUMARATE [Concomitant]
     Indication: CARDIAC FAILURE
     Dosage: UNK
     Route: 048
     Dates: end: 20010712
  6. PILSICAINIDE HYDROCHLORIDE [Concomitant]
     Indication: PROPHYLAXIS
     Route: 048
     Dates: end: 20010712
  7. WARFARIN SODIUM [Concomitant]
     Indication: ATRIAL FIBRILLATION
     Route: 048
  8. ATARAX [Suspect]
     Indication: RESTLESSNESS
     Route: 042
     Dates: start: 20010712, end: 20010712
  9. PENTAZOCINE LACTATE [Suspect]
     Indication: BRONCHOSCOPY
     Route: 030
     Dates: start: 20010712, end: 20010712

REACTIONS (6)
  - BLOOD PRESSURE DECREASED [None]
  - BRADYCARDIA [None]
  - CONVULSION [None]
  - LOSS OF CONSCIOUSNESS [None]
  - OXYGEN SATURATION DECREASED [None]
  - RESPIRATORY ARREST [None]
